FAERS Safety Report 17691984 (Version 3)
Quarter: 2020Q3

REPORT INFORMATION
  Report Type: Spontaneous
  Country: US (occurrence: US)
  Receive Date: 20200422
  Receipt Date: 20200706
  Transmission Date: 20201102
  Serious: No
  Sender: FDA-Public Use
  Company Number: US-SA-2020SA102887

PATIENT

DRUGS (2)
  1. ADMELOG [Suspect]
     Active Substance: INSULIN LISPRO
     Indication: TYPE 1 DIABETES MELLITUS
     Dosage: UNK
     Route: 065
  2. ADMELOG [Suspect]
     Active Substance: INSULIN LISPRO
     Dosage: INCREASE THE ADMELOG TO 20 %
     Route: 065

REACTIONS (1)
  - Blood glucose increased [Recovered/Resolved]
